FAERS Safety Report 7594081-4 (Version None)
Quarter: 2011Q3

REPORT INFORMATION
  Report Type: 
  Country: None (occurrence: None)
  Receive Date: 20110706
  Receipt Date: 20110705
  Transmission Date: 20111222
  Serious: Yes (Other)
  Sender: FDA-Public Use
  Company Number: US-PFIZER INC-2011150292

PATIENT
  Sex: Female
  Weight: 63 kg

DRUGS (15)
  1. MICARDIS HCT [Concomitant]
     Indication: HYPERTENSION
     Dosage: 80/25 MG, 1X/DAY
  2. DYNACIRC [Concomitant]
     Indication: HYPERTENSION
     Dosage: 10 MG, 2X/DAY
  3. LOVAZA [Concomitant]
     Dosage: 1 G, UNK
  4. BIOTIN [Concomitant]
     Dosage: 1000 UG, 1X/DAY
  5. FOSAMAX [Concomitant]
     Indication: PROPHYLAXIS
     Dosage: 70 MG, WEEKLY
  6. VITAMIN D [Concomitant]
     Dosage: 1000 UG, 1X/DAY
  7. VITAMIN B-12 [Concomitant]
     Dosage: 15 UG, 1X/DAY
  8. KLOR-CON [Concomitant]
     Dosage: UNK
  9. MAGNESIUM [Concomitant]
     Dosage: 250 MG, 1X/DAY
  10. GLUCOSAMINE [Concomitant]
     Dosage: 15 MG, UNK
  11. ACETYLSALICYLIC ACID [Concomitant]
     Indication: PROPHYLAXIS
     Dosage: 81 MG, UNK
  12. CENTRUM [Concomitant]
     Dosage: UNK, 1X/DAY
  13. CHONDROITIN [Concomitant]
     Dosage: 120 MG, UNK
  14. PREMARIN [Concomitant]
     Indication: HORMONE THERAPY
     Dosage: 0.45 MG, 1X/DAY
  15. LIPITOR [Suspect]
     Indication: BLOOD CHOLESTEROL INCREASED
     Dosage: 80 MG, 1X/DAY
     Route: 048
     Dates: start: 20050701, end: 20110702

REACTIONS (1)
  - EXTRASYSTOLES [None]
